FAERS Safety Report 6168393-5 (Version None)
Quarter: 2009Q2

REPORT INFORMATION
  Report Type: 
  Country: None (occurrence: None)
  Receive Date: 20090427
  Receipt Date: 20090420
  Transmission Date: 20091009
  Serious: Yes (Other)
  Sender: FDA-Public Use
  Company Number: SE-AVENTIS-200911772EU

PATIENT
  Age: 101 Year
  Sex: Female

DRUGS (6)
  1. LASIX LONG [Suspect]
     Indication: HYPERTENSION
     Route: 048
     Dates: start: 20090401, end: 20090404
  2. LASIX LONG [Suspect]
     Route: 048
     Dates: start: 20090401, end: 20090404
  3. LASIX LONG [Suspect]
     Route: 048
     Dates: start: 20090401, end: 20090404
  4. ATARAX [Suspect]
     Dates: end: 20090410
  5. ZOPICLONE [Concomitant]
  6. MIRTAZAPINE [Concomitant]

REACTIONS (1)
  - HALLUCINATION [None]
